FAERS Safety Report 13020215 (Version 2)
Quarter: 2017Q3

REPORT INFORMATION
  Report Type: Report from Study
  Country: US (occurrence: US)
  Receive Date: 20161212
  Receipt Date: 20170830
  Transmission Date: 20171127
  Serious: No
  Sender: FDA-Public Use
  Company Number: PHEH2016US032197

PATIENT
  Age: 55 Year
  Sex: Female

DRUGS (1)
  1. COSENTYX [Suspect]
     Active Substance: SECUKINUMAB
     Indication: PSORIASIS
     Dosage: 300 MG, QMO
     Route: 058
     Dates: start: 20161118

REACTIONS (7)
  - Feeling abnormal [Unknown]
  - Tenderness [Unknown]
  - Injection site bruising [Unknown]
  - Nasopharyngitis [Unknown]
  - Fatigue [Unknown]
  - Injection site pain [Unknown]
  - Hypokinesia [Unknown]

NARRATIVE: CASE EVENT DATE: 20161118
